FAERS Safety Report 9841596 (Version 1)
Quarter: 2013Q4

REPORT INFORMATION
  Report Type: Spontaneous
  Country: US (occurrence: None)
  Receive Date: 20131219
  Receipt Date: 20131219
  Transmission Date: 20140711
  Serious: Yes (Other)
  Sender: FDA-Public Use
  Company Number: 163-20785-12120796

PATIENT
  Age: 75 Year
  Sex: Male
  Weight: 129.2 kg

DRUGS (4)
  1. THALOMID (THALIDOMIDE) (CAPSULES) [Suspect]
     Indication: PLASMA CELL MYELOMA
     Route: 048
  2. VELCADE (BORTEZOMIB) (INJECTION) [Suspect]
     Indication: PLASMA CELL MYELOMA
     Dosage: 1.3 MG/M2, 1 IN 1 CYCLICAL, SC
     Route: 058
     Dates: start: 20121024
  3. DEXAMETHASONE (DEXAMETHASONE) [Concomitant]
  4. PROCRIT (ERYTHROPOIETIN) [Concomitant]

REACTIONS (1)
  - Bradycardia [None]
